FAERS Safety Report 5408859-6 (Version None)
Quarter: 2007Q3

REPORT INFORMATION
  Report Type: 
  Country: None (occurrence: None)
  Receive Date: 20070808
  Receipt Date: 20070727
  Transmission Date: 20080115
  Serious: Yes (Hospitalization)
  Sender: FDA-Public Use
  Company Number: FR-GILEAD-2007-0012535

PATIENT
  Sex: Female
  Weight: 76 kg

DRUGS (10)
  1. TRUVADA [Suspect]
     Indication: HIV INFECTION
     Route: 048
     Dates: start: 20070601
  2. SUSTIVA [Concomitant]
     Indication: HIV INFECTION
     Route: 048
     Dates: start: 20070601
  3. AMIKLIN [Concomitant]
     Indication: TUBERCULOSIS
     Dates: start: 20070507
  4. PIRILENE [Concomitant]
     Indication: TUBERCULOSIS
     Dates: start: 20070505
  5. MYAMBUTOL [Concomitant]
     Indication: TUBERCULOSIS
     Dates: start: 20070507
  6. RIMIFON [Concomitant]
     Indication: TUBERCULOSIS
     Dates: start: 20070514
  7. BACTRIM [Concomitant]
     Indication: PROPHYLAXIS
     Dates: start: 20070222
  8. DEPAKENE [Concomitant]
     Indication: EPILEPSY
     Dates: start: 20070514
  9. AZADOSE [Concomitant]
     Indication: OPPORTUNISTIC INFECTION PROPHYLAXIS
     Dates: start: 20070514
  10. IZILOX [Concomitant]
     Indication: TUBERCULOSIS
     Dates: start: 20070507

REACTIONS (1)
  - IMMUNE RECONSTITUTION SYNDROME [None]
